FAERS Safety Report 9443081 (Version 2)
Quarter: 2013Q3

REPORT INFORMATION
  Report Type: Spontaneous
  Country: US (occurrence: US)
  Receive Date: 20130806
  Receipt Date: 20130903
  Transmission Date: 20140515
  Serious: Yes (Other)
  Sender: FDA-Public Use
  Company Number: US-ELI_LILLY_AND_COMPANY-US201307009362

PATIENT
  Age: 60 Year
  Sex: Female

DRUGS (3)
  1. CYMBALTA [Suspect]
     Indication: DEPRESSION
     Dosage: 120 MG, UNKNOWN
     Route: 065
     Dates: start: 20080821
  2. CYMBALTA [Suspect]
     Indication: ANXIETY
  3. CYMBALTA [Suspect]
     Indication: FIBROMYALGIA

REACTIONS (2)
  - B-cell lymphoma [Recovered/Resolved]
  - B-cell lymphoma recurrent [Unknown]
